FAERS Safety Report 5920462-8 (Version None)
Quarter: 2008Q4

REPORT INFORMATION
  Report Type: 
  Country: None (occurrence: None)
  Receive Date: 20081015
  Receipt Date: 20081015
  Transmission Date: 20090506
  Serious: Yes (Hospitalization)
  Sender: FDA-Public Use
  Company Number: None

PATIENT
  Age: 28 Year
  Sex: Female

DRUGS (1)
  1. AMOXICILLIN [Suspect]
     Indication: INFECTION
     Dosage: ONCE PO
     Route: 048
     Dates: start: 20081009, end: 20081009

REACTIONS (2)
  - DRUG HYPERSENSITIVITY [None]
  - SELF-MEDICATION [None]
